FAERS Safety Report 4332502-0 (Version None)
Quarter: 2004Q2

REPORT INFORMATION
  Report Type: 
  Country: None (occurrence: None)
  Receive Date: 20040401
  Receipt Date: 20040325
  Transmission Date: 20050107
  Serious: No
  Sender: FDA-Public Use
  Company Number: 2004CG00488

PATIENT
  Age: 55 Year
  Sex: Female
  Weight: 75 kg

DRUGS (2)
  1. NEXIUM [Suspect]
     Indication: GASTRIC ULCER
     Dosage: 40 MG DAILY PO
     Route: 048
     Dates: start: 20040301, end: 20040306
  2. PROCTOLOG [Concomitant]

REACTIONS (1)
  - OCULAR HYPERTENSION [None]
